FAERS Safety Report 10195285 (Version 2)
Quarter: 2014Q2

REPORT INFORMATION
  Report Type: Spontaneous
  Country: CH (occurrence: CH)
  Receive Date: 20140526
  Receipt Date: 20140603
  Transmission Date: 20141212
  Serious: Yes (Hospitalization)
  Sender: FDA-Public Use
  Company Number: PHHY2014CH059711

PATIENT
  Age: 78 Year
  Sex: Female

DRUGS (8)
  1. OMEPRAZOLE [Suspect]
     Dosage: 20 MG, UNK
  2. METOPROLOL [Concomitant]
     Dosage: 100 MG, QD
  3. LERCANIDIPINE [Concomitant]
     Dosage: 10 MG, QD
  4. PERINDOPRIL [Concomitant]
     Dosage: 5 MG, QD
  5. CALCIUM W/COLECALCIFEROL [Concomitant]
     Dosage: 500 MG/440 IU
  6. VITAMIN D3 [Concomitant]
     Route: 030
  7. IBUPROFEN [Concomitant]
     Dosage: 400 MG, PRN
  8. ZOLPIDEM [Concomitant]
     Dosage: 5 MG, QD

REACTIONS (14)
  - Cerebral microangiopathy [Recovering/Resolving]
  - General physical health deterioration [Recovering/Resolving]
  - Generalised tonic-clonic seizure [Recovering/Resolving]
  - Cognitive disorder [Recovering/Resolving]
  - Malaise [Recovering/Resolving]
  - Dizziness [Recovering/Resolving]
  - Tachypnoea [Recovering/Resolving]
  - Apraxia [Recovering/Resolving]
  - Hypokalaemia [Recovered/Resolved]
  - Hypocalcaemia [Recovered/Resolved]
  - Hypomagnesaemia [Recovered/Resolved]
  - Asthenia [Recovering/Resolving]
  - Hypertonia [Recovering/Resolving]
  - Tachycardia [Recovering/Resolving]
